FAERS Safety Report 6110205-X (Version None)
Quarter: 2009Q1

REPORT INFORMATION
  Report Type: 
  Country: None (occurrence: None)
  Receive Date: 20090309
  Receipt Date: 20090309
  Transmission Date: 20090719
  Serious: Yes (Life-Threatening, Hospitalization)
  Sender: FDA-Public Use
  Company Number: None

PATIENT
  Sex: Male
  Weight: 92 kg

DRUGS (13)
  1. SIROLIMUS [Suspect]
     Indication: IMMUNOSUPPRESSION
     Dosage: 3MG QD PO
     Route: 048
     Dates: start: 20040812, end: 20041015
  2. SIROLIMUS [Suspect]
     Indication: LUNG TRANSPLANT
     Dosage: 3MG QD PO
     Route: 048
     Dates: start: 20040812, end: 20041015
  3. PROGRAF [Concomitant]
  4. PREDNISONE TAB [Concomitant]
  5. BACTRIM [Concomitant]
  6. CALCIUM CARBONATE [Concomitant]
  7. MG OXIDE [Concomitant]
  8. M.V.I. [Concomitant]
  9. TOPROL-XL [Concomitant]
  10. RISEDRONATE SODIUM [Concomitant]
  11. PREVACID [Concomitant]
  12. FLOMAX [Concomitant]
  13. GLUCOSAMINE [Concomitant]

REACTIONS (3)
  - OEDEMA PERIPHERAL [None]
  - THROMBOCYTOPENIA [None]
  - VENOUS THROMBOSIS [None]
